FAERS Safety Report 15117336 (Version 1)
Quarter: 2018Q2

REPORT INFORMATION
  Report Type: Spontaneous
  Country: US (occurrence: US)
  Receive Date: 20180612
  Receipt Date: 20180612
  Transmission Date: 20180711
  Serious: Yes (Death)
  Sender: FDA-Public Use
  Company Number: None

PATIENT
  Age: 79 Year
  Sex: Female

DRUGS (1)
  1. IBRANCE [Suspect]
     Active Substance: PALBOCICLIB
     Indication: CANCER SURGERY
     Dosage: 75MG QD FOR 21 PO
     Route: 048
     Dates: start: 20171109

REACTIONS (1)
  - Death [None]

NARRATIVE: CASE EVENT DATE: 20180519
